FAERS Safety Report 9005004 (Version 3)
Quarter: 2013Q1

REPORT INFORMATION
  Report Type: Spontaneous
  Country: US (occurrence: US)
  Receive Date: 20130109
  Receipt Date: 20130315
  Transmission Date: 20140127
  Serious: Yes (Other)
  Sender: FDA-Public Use
  Company Number: US-JNJFOC-20130101804

PATIENT
  Sex: Female
  Weight: 68.04 kg

DRUGS (11)
  1. FENTANYL TRANSDERMAL SYSTEM [Suspect]
     Indication: MUSCULOSKELETAL PAIN
     Route: 062
     Dates: start: 201210
  2. FENTANYL TRANSDERMAL SYSTEM [Suspect]
     Indication: MUSCULOSKELETAL PAIN
     Route: 062
     Dates: start: 201106, end: 201210
  3. FENTANYL TRANSDERMAL SYSTEM [Suspect]
     Indication: PAIN IN EXTREMITY
     Route: 062
     Dates: start: 201106, end: 201210
  4. FENTANYL TRANSDERMAL SYSTEM [Suspect]
     Indication: PAIN IN EXTREMITY
     Route: 062
     Dates: start: 201210
  5. DURAGESIC [Suspect]
     Indication: MUSCULOSKELETAL PAIN
     Route: 062
     Dates: start: 201210
  6. DURAGESIC [Suspect]
     Indication: PAIN IN EXTREMITY
     Route: 062
     Dates: start: 201210
  7. UNKNOWN MEDICATION [Concomitant]
     Indication: GASTROINTESTINAL DISORDER
     Route: 065
  8. UNKNOWN MEDICATION [Concomitant]
     Indication: HYPERCHLORHYDRIA
     Route: 065
  9. STOOL SOFTENERS [Concomitant]
     Indication: FAECES HARD
     Route: 065
  10. LAXATIVE [Concomitant]
     Indication: ABNORMAL FAECES
     Route: 065
  11. ZANTAC [Concomitant]
     Indication: PRODUCT USED FOR UNKNOWN INDICATION
     Route: 065

REACTIONS (8)
  - Intentional drug misuse [Recovered/Resolved]
  - Hypersomnia [Recovered/Resolved]
  - Hyperhidrosis [Not Recovered/Not Resolved]
  - Product quality issue [Recovered/Resolved]
  - Wrong technique in drug usage process [Not Recovered/Not Resolved]
  - Pain [Recovering/Resolving]
  - Treatment noncompliance [Recovered/Resolved]
  - Therapeutic response unexpected [Unknown]
